FAERS Safety Report 6992191-3 (Version None)
Quarter: 2010Q3

REPORT INFORMATION
  Report Type: 
  Country: None (occurrence: None)
  Receive Date: 20100916
  Receipt Date: 20100916
  Transmission Date: 20110219
  Serious: Yes (Hospitalization)
  Sender: FDA-Public Use
  Company Number: None

PATIENT
  Age: 78 Year
  Sex: Female

DRUGS (1)
  1. VANCOMYCIN [Suspect]
     Indication: CELLULITIS
     Dosage: VANCOMYCIN 1GM DAILY IV
     Route: 042
     Dates: start: 20091111, end: 20091111

REACTIONS (1)
  - ANAPHYLACTIC REACTION [None]
